FAERS Safety Report 8153870-8 (Version None)
Quarter: 2012Q1

REPORT INFORMATION
  Report Type: 
  Country: None (occurrence: None)
  Receive Date: 20120221
  Receipt Date: 20120209
  Transmission Date: 20120608
  Serious: Yes (Death, Hospitalization, Other)
  Sender: FDA-Public Use
  Company Number: GB-ELI_LILLY_AND_COMPANY-GB201202002888

PATIENT
  Age: 57 Year
  Sex: Female
  Weight: 54 kg

DRUGS (11)
  1. FLUOXETINE [Concomitant]
  2. SIMVASTATIN [Concomitant]
  3. ALBUTEROL SULFATE AUTOHALER [Concomitant]
  4. FORTEO [Suspect]
     Indication: OSTEOPOROSIS
     Dosage: 20 UG, QD
     Route: 058
     Dates: start: 20110505, end: 20111101
  5. OMEPRAZOLE [Concomitant]
  6. LANTUS [Concomitant]
  7. CALCIUM CARBONATE [Concomitant]
  8. BECLOMETHASONE DIPROPIONATE [Concomitant]
  9. EZETIMIBE [Concomitant]
  10. HUMALOG [Concomitant]
  11. QUININE SULFATE [Concomitant]

REACTIONS (6)
  - MYOCARDIAL INFARCTION [None]
  - CARDIAC ARREST [None]
  - LUMBAR VERTEBRAL FRACTURE [None]
  - RENAL FAILURE [None]
  - MULTIPLE MYELOMA [None]
  - PNEUMONIA [None]
